FAERS Safety Report 17445593 (Version 4)
Quarter: 2020Q3

REPORT INFORMATION
  Report Type: Spontaneous
  Country: US (occurrence: US)
  Receive Date: 20200221
  Receipt Date: 20200803
  Transmission Date: 20201102
  Serious: Yes (Other)
  Sender: FDA-Public Use
  Company Number: US-PFIZER INC-2020075912

PATIENT
  Age: 63 Year
  Sex: Male

DRUGS (1)
  1. XELJANZ [Suspect]
     Active Substance: TOFACITINIB CITRATE
     Indication: COLITIS ULCERATIVE
     Dosage: 5 MG, 2X/DAY
     Route: 048
     Dates: start: 201912

REACTIONS (10)
  - Drug ineffective [Unknown]
  - Rectal haemorrhage [Unknown]
  - Skin burning sensation [Not Recovered/Not Resolved]
  - Therapeutic product effect incomplete [Unknown]
  - Bowel movement irregularity [Recovered/Resolved]
  - Frequent bowel movements [Recovered/Resolved]
  - Micturition urgency [Unknown]
  - Diarrhoea [Recovered/Resolved]
  - Anal fissure [Unknown]
  - Condition aggravated [Not Recovered/Not Resolved]

NARRATIVE: CASE EVENT DATE: 20200521
